FAERS Safety Report 25564470 (Version 1)
Quarter: 2025Q3

REPORT INFORMATION
  Report Type: Spontaneous
  Country: US (occurrence: US)
  Receive Date: 20250716
  Receipt Date: 20250716
  Transmission Date: 20251021
  Serious: Yes (Hospitalization)
  Sender: DAIICHI
  Company Number: US-DSJP-DS-2025-152095-USAA

PATIENT
  Sex: Male

DRUGS (1)
  1. VANFLYTA [Suspect]
     Active Substance: QUIZARTINIB DIHYDROCHLORIDE
     Indication: Acute myeloid leukaemia
     Dosage: 2 DOSAGE FORM, QD (TABLETS ONCE DAILY ON DAYS 6-19 OF EACH 28 DAY CYCLE)
     Route: 048

REACTIONS (1)
  - Full blood count decreased [Not Recovered/Not Resolved]
